FAERS Safety Report 9138003 (Version 1)
Quarter: 2013Q1

REPORT INFORMATION
  Report Type: Spontaneous
  Country: US (occurrence: US)
  Receive Date: 20130304
  Receipt Date: 20130304
  Transmission Date: 20140127
  Serious: No
  Sender: FDA-Public Use
  Company Number: US-ABBOTT-12P-163-0948490-00

PATIENT
  Sex: Male
  Weight: 111.68 kg

DRUGS (5)
  1. ANDROGEL 1% [Suspect]
     Indication: BLOOD TESTOSTERONE DECREASED
     Dosage: 4 PUMPS PER DAY
     Dates: start: 2001, end: 2011
  2. ANDROGEL 1.62% [Suspect]
     Indication: BLOOD TESTOSTERONE DECREASED
     Dosage: 3 PUMPS PER DAY
     Dates: start: 2011
  3. UNKNOWN MEDICATIONS [Concomitant]
     Indication: BLOOD PRESSURE
  4. LASIX [Concomitant]
     Indication: FLUID RETENTION
  5. UNKNOWN MEDICATION [Concomitant]
     Indication: BLADDER DISORDER

REACTIONS (11)
  - Dyspnoea exertional [Unknown]
  - Breast swelling [Unknown]
  - Breast pain [Unknown]
  - Gynaecomastia [Unknown]
  - Breast mass [Unknown]
  - Breast mass [Unknown]
  - Local swelling [Unknown]
  - Local swelling [Unknown]
  - Joint swelling [Unknown]
  - Blister [Unknown]
  - Skin discolouration [Unknown]
